FAERS Safety Report 14367085 (Version 2)
Quarter: 2018Q1

REPORT INFORMATION
  Report Type: Spontaneous
  Country: JP (occurrence: JP)
  Receive Date: 20180109
  Receipt Date: 20180206
  Transmission Date: 20180509
  Serious: Yes (Other)
  Sender: FDA-Public Use
  Company Number: JP-PFIZER INC-2017531481

PATIENT
  Age: 20 Year
  Sex: Female
  Weight: 60.8 kg

DRUGS (17)
  1. ACELIO [Suspect]
     Active Substance: ACETAMINOPHEN
     Dosage: 2000 MG (1000 MG, 2 IN 1 D)
     Route: 041
     Dates: start: 20170123
  2. FENTANYL. [Concomitant]
     Active Substance: FENTANYL
     Indication: ANALGESIC THERAPY
     Dosage: UNK (1)
     Route: 042
     Dates: start: 20170118, end: 20170122
  3. PHYSIO 140 [Concomitant]
     Active Substance: CALCIUM GLUCONATE\DEXTROSE\MAGNESIUM CHLORIDE\POTASSIUM CHLORIDE\SODIUM ACETATE\SODIUM CHLORIDE\TRISODIUM CITRATE DIHYDRATE
     Dosage: UNK
     Route: 041
     Dates: start: 20170118
  4. PICOSULFATE NA [Concomitant]
     Active Substance: SODIUM PICOSULFATE
     Dosage: UNK
     Route: 048
     Dates: start: 20170123
  5. DAIKENCHUTO [Concomitant]
     Active Substance: HERBALS
     Indication: CONSTIPATION PROPHYLAXIS
     Dosage: 15 GM (5 GM, 3 IN 1 D)
     Route: 048
     Dates: start: 20170121, end: 20170124
  6. FOSPHENYTOIN SODIUM. [Suspect]
     Active Substance: FOSPHENYTOIN SODIUM
     Indication: SEIZURE
     Dosage: 750 MG, 1X/DAY
     Route: 041
     Dates: start: 20170118, end: 20170118
  7. TRANEXAMIC ACID. [Concomitant]
     Active Substance: TRANEXAMIC ACID
     Dosage: 2 GM (1 GM, 2 IN 1 D)
     Route: 041
     Dates: start: 20170118, end: 20170119
  8. MIDAZOLAM [Concomitant]
     Active Substance: MIDAZOLAM HYDROCHLORIDE
     Indication: SEDATION
     Dosage: UNK (1)
     Route: 042
     Dates: start: 20170118, end: 20170122
  9. HEPARIN [Concomitant]
     Active Substance: HEPARIN SODIUM
     Indication: THROMBOSIS PROPHYLAXIS
     Dosage: UNK (10000)
     Route: 042
     Dates: start: 20170123
  10. TAKEPRON [Concomitant]
     Active Substance: LANSOPRAZOLE
     Indication: ULCER
     Dosage: 60 MG (30 MG, 2 IN 1D)
     Route: 042
     Dates: start: 20170118, end: 20170123
  11. SULBACILLIN [Concomitant]
     Active Substance: AMPICILLIN SODIUM\SULBACTAM SODIUM
     Indication: INFECTION PROPHYLAXIS
     Dosage: 12 GM (3 GM, 4 IN 1 D)
     Route: 041
     Dates: start: 20170119
  12. ACELIO [Suspect]
     Active Substance: ACETAMINOPHEN
     Indication: PYREXIA
     Dosage: 1000 MG (1000 MG, 1 IN 1 D)
     Route: 041
     Dates: start: 20170118, end: 20170118
  13. CEFAZOLIN NA [Concomitant]
     Active Substance: CEFAZOLIN SODIUM
     Indication: INFECTION PROPHYLAXIS
     Dosage: 3GM (1 GM,3 IN 1 D)
     Route: 041
     Dates: start: 20170118, end: 20170119
  14. FOSPHENYTOIN SODIUM. [Suspect]
     Active Substance: FOSPHENYTOIN SODIUM
     Dosage: 375 MG, 1X/DAY
     Route: 041
     Dates: start: 20170119, end: 20170124
  15. ACELIO [Suspect]
     Active Substance: ACETAMINOPHEN
     Dosage: 4000 MG (1000 MG,4 IN 1 D)
     Route: 041
     Dates: start: 20170122, end: 20170122
  16. ESLAX [Concomitant]
     Active Substance: ROCURONIUM BROMIDE
     Indication: HYPOTONIA
     Dosage: 50 MG (50 MG, 1 IN 1 D)
     Route: 042
     Dates: start: 20170118
  17. CHICHINA [Concomitant]
     Dosage: 100 MG (50 MG, 2 IN 1 D)
     Route: 041
     Dates: start: 20170118, end: 20170119

REACTIONS (5)
  - Pyrexia [Unknown]
  - Drug level decreased [Unknown]
  - Liver disorder [Recovered/Resolved]
  - Hepatic enzyme increased [Recovered/Resolved]
  - Sputum purulent [Unknown]

NARRATIVE: CASE EVENT DATE: 20170120
